FAERS Safety Report 15328017 (Version 1)
Quarter: 2018Q3

REPORT INFORMATION
  Report Type: Spontaneous
  Country: US (occurrence: US)
  Receive Date: 20180828
  Receipt Date: 20180828
  Transmission Date: 20181010
  Serious: No
  Sender: FDA-Public Use
  Company Number: US-ASTRAZENECA-2018SF06745

PATIENT
  Age: 59 Year
  Sex: Male
  Weight: 88.5 kg

DRUGS (5)
  1. MOVANTIK [Suspect]
     Active Substance: NALOXEGOL OXALATE
     Indication: CONSTIPATION
     Route: 048
  2. SLIPPERY ELM [Concomitant]
     Active Substance: ELM
     Indication: ABNORMAL FAECES
     Route: 048
  3. RELISTOR [Concomitant]
     Active Substance: METHYLNALTREXONE BROMIDE
     Indication: CONSTIPATION
     Route: 048
     Dates: start: 20180816
  4. LISINOPRIL?HCTZ [Suspect]
     Active Substance: HYDROCHLOROTHIAZIDE\LISINOPRIL
     Indication: BLOOD PRESSURE MEASUREMENT
     Dosage: UNKNOW, DAILY.
     Route: 048
     Dates: start: 2006
  5. LISINOPRIL?HCTZ [Suspect]
     Active Substance: HYDROCHLOROTHIAZIDE\LISINOPRIL
     Indication: PERIPHERAL SWELLING
     Dosage: UNKNOW, DAILY.
     Route: 048
     Dates: start: 2006

REACTIONS (7)
  - Muscle spasms [Unknown]
  - Constipation [Unknown]
  - Weight decreased [Recovered/Resolved]
  - Intentional product misuse [Not Recovered/Not Resolved]
  - Drug screen positive [Not Recovered/Not Resolved]
  - Peripheral swelling [Not Recovered/Not Resolved]
  - Blood pressure measurement [Unknown]

NARRATIVE: CASE EVENT DATE: 2017
